FAERS Safety Report 8399074-5 (Version None)
Quarter: 2012Q2

REPORT INFORMATION
  Report Type: 
  Country: None (occurrence: None)
  Receive Date: 20120531
  Receipt Date: 20120528
  Transmission Date: 20120825
  Serious: Yes (Hospitalization, Other)
  Sender: FDA-Public Use
  Company Number: AR-ROCHE-1038430

PATIENT
  Sex: Female

DRUGS (1)
  1. LUCENTIS [Suspect]
     Indication: DIABETIC RETINOPATHY
     Dosage: DOSE : 3 AMPOULES IN TOTAL
     Route: 050
     Dates: start: 20110401

REACTIONS (5)
  - CARDIAC FAILURE [None]
  - DRUG INEFFECTIVE [None]
  - DIABETIC RETINOPATHY [None]
  - OSTEOARTHRITIS [None]
  - CONDITION AGGRAVATED [None]
